FAERS Safety Report 20799444 (Version 3)
Quarter: 2022Q2

REPORT INFORMATION
  Report Type: Report from Study
  Country: US (occurrence: US)
  Receive Date: 20220508
  Receipt Date: 20220606
  Transmission Date: 20220721
  Serious: Yes (Other)
  Sender: FDA-Public Use
  Company Number: US-ABBVIE-22K-163-4384040-00

PATIENT
  Sex: Male

DRUGS (2)
  1. IMBRUVICA [Suspect]
     Active Substance: IBRUTINIB
     Indication: Chronic lymphocytic leukaemia
     Route: 048
     Dates: start: 20211101, end: 20220411
  2. IMBRUVICA [Suspect]
     Active Substance: IBRUTINIB
     Dosage: DOSAGE DECREASED
     Route: 048
     Dates: start: 202204

REACTIONS (4)
  - Knee arthroplasty [Recovering/Resolving]
  - Chest pain [Unknown]
  - Haemorrhagic diathesis [Unknown]
  - Contusion [Unknown]

NARRATIVE: CASE EVENT DATE: 20220101
